FAERS Safety Report 25345777 (Version 1)
Quarter: 2025Q2

REPORT INFORMATION
  Report Type: Report from Study
  Country: CA (occurrence: CA)
  Receive Date: 20250522
  Receipt Date: 20250522
  Transmission Date: 20250717
  Serious: Yes (Hospitalization, Other)
  Sender: TAKEDA
  Company Number: CA-TAKEDA-2025TUS047007

PATIENT
  Sex: Male

DRUGS (3)
  1. VEDOLIZUMAB [Suspect]
     Active Substance: VEDOLIZUMAB
     Indication: Crohn^s disease
  2. VEDOLIZUMAB [Suspect]
     Active Substance: VEDOLIZUMAB
     Dosage: 300 MILLIGRAM, Q4WEEKS
     Dates: start: 20231005
  3. PENTASA [Concomitant]
     Active Substance: MESALAMINE

REACTIONS (6)
  - Bradycardia neonatal [Unknown]
  - Infantile apnoea [Unknown]
  - Jaundice neonatal [Unknown]
  - Body temperature decreased [Unknown]
  - Viral infection [Unknown]
  - Foetal exposure during pregnancy [Unknown]
